FAERS Safety Report 8828756 (Version 1)
Quarter: 2012Q4

REPORT INFORMATION
  Report Type: 
  Country: US (occurrence: US)
  Receive Date: 20121008
  Receipt Date: 20121008
  Transmission Date: 20130627
  Serious: Yes (Life-Threatening, Other)
  Sender: FDA-Public Use
  Company Number: US-ASTRAZENECA-2012SE76525

PATIENT
  Age: 62 Year
  Sex: Male

DRUGS (2)
  1. NEXIUM [Suspect]
     Route: 048
  2. MUSCLE RELAXER [Concomitant]

REACTIONS (4)
  - Coma [Unknown]
  - Myocardial infarction [Unknown]
  - Memory impairment [Unknown]
  - Dysgraphia [Unknown]
